FAERS Safety Report 4795148-6 (Version None)
Quarter: 2005Q4

REPORT INFORMATION
  Report Type: 
  Country: None (occurrence: None)
  Receive Date: 20051006
  Receipt Date: 20051006
  Transmission Date: 20060501
  Serious: No
  Sender: FDA-Public Use
  Company Number: None

PATIENT
  Age: 62 Year
  Sex: Male
  Weight: 123 kg

DRUGS (8)
  1. ALLOPURINOL 100MG TAB [Suspect]
     Dosage: 100 MG PO DAILY
     Route: 048
     Dates: start: 20050826, end: 20050901
  2. ALLOPURINOL TAB [Suspect]
     Dosage: 300 MG PO DAILY
     Route: 048
     Dates: start: 20050902, end: 20050918
  3. COLCHICINE [Concomitant]
  4. LIPITOR [Concomitant]
  5. LOPRESSOR [Concomitant]
  6. AMLODIPINE [Concomitant]
  7. LANSOPRAZOLE [Concomitant]
  8. IMODIUM [Concomitant]

REACTIONS (1)
  - LEUKOPENIA [None]
